FAERS Safety Report 5116711-9 (Version None)
Quarter: 2006Q3

REPORT INFORMATION
  Report Type: 
  Country: None (occurrence: None)
  Receive Date: 20060925
  Receipt Date: 20060912
  Transmission Date: 20061208
  Serious: Yes (Other)
  Sender: FDA-Public Use
  Company Number: 2006110809

PATIENT
  Sex: Female

DRUGS (2)
  1. CELEBREX [Suspect]
  2. ESTROGENIC SUBSTANCE [Suspect]

REACTIONS (3)
  - EMBOLISM [None]
  - THROMBOSIS [None]
  - TREATMENT NONCOMPLIANCE [None]
